FAERS Safety Report 11250227 (Version 1)
Quarter: 2015Q3

REPORT INFORMATION
  Report Type: Spontaneous
  Country: US (occurrence: US)
  Receive Date: 20150708
  Receipt Date: 20150708
  Transmission Date: 20151125
  Serious: No
  Sender: FDA-Public Use
  Company Number: US-ELI_LILLY_AND_COMPANY-US200905001235

PATIENT
  Age: 43 Year
  Sex: Female

DRUGS (4)
  1. SYMBYAX [Suspect]
     Active Substance: FLUOXETINE HYDROCHLORIDE\OLANZAPINE
     Indication: BIPOLAR DISORDER
     Dosage: 1 D/F, UNK
     Dates: start: 200903
  2. ZITHROMAX [Concomitant]
     Active Substance: AZITHROMYCIN DIHYDRATE
     Dates: start: 20090430
  3. INSULIN [Concomitant]
     Active Substance: INSULIN NOS
  4. TEMAZEPAM. [Concomitant]
     Active Substance: TEMAZEPAM

REACTIONS (7)
  - Tongue blistering [Not Recovered/Not Resolved]
  - Candida infection [Unknown]
  - Medication error [Unknown]
  - Mouth haemorrhage [Unknown]
  - Blood glucose decreased [Unknown]
  - Hyperhidrosis [Not Recovered/Not Resolved]
  - Pain [Unknown]

NARRATIVE: CASE EVENT DATE: 20090428
